FAERS Safety Report 8118672-7 (Version None)
Quarter: 2012Q1

REPORT INFORMATION
  Report Type: 
  Country: None (occurrence: None)
  Receive Date: 20120202
  Receipt Date: 20120119
  Transmission Date: 20120608
  Serious: Yes (Other)
  Sender: FDA-Public Use
  Company Number: 1000027466

PATIENT
  Sex: Female

DRUGS (4)
  1. NYSTATIN [Suspect]
     Indication: GASTROINTESTINAL FUNGAL INFECTION
  2. ESCITALOPRAM OXALATE [Suspect]
     Indication: ANXIETY DISORDER
     Dosage: 15 MG (15 MG, 1 IN 1 D)
  3. ESCITALOPRAM OXALATE [Suspect]
     Indication: ANXIETY DISORDER
     Dosage: 20 MG (20 MG, 1 IN 1 D) 15 MG (15 MG, 1 IN 1 D)
  4. ESCITALOPRAM OXALATE [Suspect]
     Indication: ANXIETY DISORDER
     Dosage: 20 MG (20 MG, 1 IN 1 D) TAPERED DOWN FROM 20 MG TO 5 MG IN STEPS OF 2.5 MG

REACTIONS (8)
  - DEPRESSED MOOD [None]
  - STRESS AT WORK [None]
  - CONDITION AGGRAVATED [None]
  - SEROTONIN SYNDROME [None]
  - DRUG INTERACTION [None]
  - GASTROINTESTINAL INFECTION [None]
  - FEELING ABNORMAL [None]
  - ANXIETY DISORDER [None]
